FAERS Safety Report 8821147 (Version 1)
Quarter: 2012Q4

REPORT INFORMATION
  Report Type: 
  Country: US (occurrence: US)
  Receive Date: 20121002
  Receipt Date: 20121002
  Transmission Date: 20130627
  Serious: No
  Sender: FDA-Public Use
  Company Number: US-BRISTOL-MYERS SQUIBB COMPANY-16324139

PATIENT
  Age: 51 Year
  Sex: Female
  Weight: 85 kg

DRUGS (8)
  1. BUSPAR [Suspect]
     Indication: ANXIETY
  2. HUMIRA [Suspect]
     Indication: PSORIATIC ARTHROPATHY
     Dosage: 40mg/0.8ml PEN inj:40mg:Nov2009-Nov-2010,restarted Sep11-ong
last inj:Oct11
     Route: 058
     Dates: start: 200911
  3. HUMIRA [Suspect]
     Indication: SCLERITIS
     Dosage: 40mg/0.8ml PEN inj:40mg:Nov2009-Nov-2010,restarted Sep11-ong
last inj:Oct11
     Route: 058
     Dates: start: 200911
  4. PROTONIX [Suspect]
     Indication: GASTROOESOPHAGEAL REFLUX DISEASE
     Route: 065
  5. SINGULAIR [Suspect]
     Indication: ASTHMA
  6. ALBUTEROL SULFATE [Suspect]
     Indication: ASTHMA
  7. PREDNISONE ACETATE [Suspect]
     Indication: SCLERITIS
  8. PARACETAMOL [Concomitant]
     Indication: PAIN

REACTIONS (2)
  - Pain in extremity [Unknown]
  - Abdominal pain upper [Recovered/Resolved]
